FAERS Safety Report 24733474 (Version 1)
Quarter: 2024Q4

REPORT INFORMATION
  Report Type: Spontaneous
  Country: US (occurrence: US)
  Receive Date: 20241213
  Receipt Date: 20241213
  Transmission Date: 20250115
  Serious: No
  Sender: LUNDBECK
  Company Number: US-LUNDBECK-DKLU4007254

PATIENT

DRUGS (8)
  1. SABRIL [Suspect]
     Active Substance: VIGABATRIN
     Indication: Tuberous sclerosis complex
     Dosage: 2000 MILLIGRAM
     Route: 048
     Dates: start: 20221110
  2. SABRIL [Suspect]
     Active Substance: VIGABATRIN
     Dosage: 1500 MILLIGRAM
     Route: 048
     Dates: start: 20221110
  3. ONFI [Concomitant]
     Active Substance: CLOBAZAM
     Indication: Product used for unknown indication
  4. HYFTOR [Concomitant]
     Active Substance: SIROLIMUS
     Indication: Product used for unknown indication
     Route: 061
  5. EVEROLIMUS [Concomitant]
     Active Substance: EVEROLIMUS
     Indication: Product used for unknown indication
  6. KEPPRA [Concomitant]
     Active Substance: LEVETIRACETAM
     Indication: Product used for unknown indication
  7. TAURINE [Concomitant]
     Active Substance: TAURINE
     Indication: Product used for unknown indication
  8. ZOLOFT [Concomitant]
     Active Substance: SERTRALINE HYDROCHLORIDE
     Indication: Product used for unknown indication

REACTIONS (2)
  - Unevaluable event [Unknown]
  - Prescribed overdose [Unknown]
